FAERS Safety Report 15439436 (Version 1)
Quarter: 2018Q3

REPORT INFORMATION
  Report Type: Spontaneous
  Country: US (occurrence: US)
  Receive Date: 20180924
  Receipt Date: 20180924
  Transmission Date: 20181010
  Serious: No
  Sender: FDA-Public Use
  Company Number: None

PATIENT
  Age: 59 Year
  Sex: Female
  Weight: 80.74 kg

DRUGS (23)
  1. LASIX [Concomitant]
     Active Substance: FUROSEMIDE
  2. CRESTOR [Concomitant]
     Active Substance: ROSUVASTATIN CALCIUM
  3. METHADONE [Concomitant]
     Active Substance: METHADONE HYDROCHLORIDE
  4. ZONTIVITY [Suspect]
     Active Substance: VORAPAXAR SULFATE
     Indication: PROPHYLAXIS
     Dosage: ?          QUANTITY:1 DF DOSAGE FORM;?
     Route: 048
     Dates: start: 20180327
  5. BYSTOLIC [Concomitant]
     Active Substance: NEBIVOLOL HYDROCHLORIDE
  6. VITAMIN D [Concomitant]
     Active Substance: CHOLECALCIFEROL
  7. ZONTIVITY [Suspect]
     Active Substance: VORAPAXAR SULFATE
     Indication: THROMBOSIS
     Dosage: ?          QUANTITY:1 DF DOSAGE FORM;?
     Route: 048
     Dates: start: 20180327
  8. RAMIPRIL. [Concomitant]
     Active Substance: RAMIPRIL
  9. SPIRONOLACTONE. [Concomitant]
     Active Substance: SPIRONOLACTONE
  10. ZETIA [Concomitant]
     Active Substance: EZETIMIBE
  11. SOLIQUA 100/33 [Concomitant]
     Active Substance: INSULIN GLARGINE\LIXISENATIDE
  12. AMLODIPINE BESYLATE. [Concomitant]
     Active Substance: AMLODIPINE BESYLATE
  13. EPIPEN [Concomitant]
     Active Substance: EPINEPHRINE
  14. POTASSIUM HCL [Concomitant]
  15. METFORMIN [Concomitant]
     Active Substance: METFORMIN HYDROCHLORIDE
  16. BYSTOLIC [Concomitant]
     Active Substance: NEBIVOLOL HYDROCHLORIDE
  17. LANSOPRAZOLE. [Concomitant]
     Active Substance: LANSOPRAZOLE
  18. HUMALOG [Concomitant]
     Active Substance: INSULIN LISPRO
  19. SARDIANCE [Concomitant]
  20. ASPIRIN. [Concomitant]
     Active Substance: ASPIRIN
  21. LEVOCETRIIZINE [Concomitant]
  22. VITAMIN B12 [Concomitant]
     Active Substance: CYANOCOBALAMIN
  23. OXYCODONE [Concomitant]
     Active Substance: OXYCODONE

REACTIONS (1)
  - Retinal haemorrhage [None]

NARRATIVE: CASE EVENT DATE: 20180707
